FAERS Safety Report 6328280-6 (Version None)
Quarter: 2009Q3

REPORT INFORMATION
  Report Type: 
  Country: None (occurrence: None)
  Receive Date: 20090825
  Receipt Date: 20090601
  Transmission Date: 20100115
  Serious: No
  Sender: FDA-Public Use
  Company Number: US-ABBOTT-09P-163-0577131-00

PATIENT
  Sex: Female
  Weight: 56.296 kg

DRUGS (4)
  1. SYNTHROID [Suspect]
     Indication: HYPOTHYROIDISM
     Route: 048
     Dates: start: 20080101, end: 20090101
  2. SYNTHROID [Suspect]
     Route: 048
     Dates: start: 20090101
  3. VITAMIN D [Concomitant]
     Indication: VITAMIN SUPPLEMENTATION
     Route: 048
     Dates: start: 20090101
  4. VITAMIN D [Concomitant]
     Dosage: 50,000 UNITS DAILY
     Route: 048
     Dates: start: 20090101, end: 20090101

REACTIONS (1)
  - ALOPECIA [None]
